FAERS Safety Report 7622285-0 (Version None)
Quarter: 2011Q3

REPORT INFORMATION
  Report Type: 
  Country: None (occurrence: None)
  Receive Date: 20110720
  Receipt Date: 20110628
  Transmission Date: 20111222
  Serious: Yes (Other)
  Sender: FDA-Public Use
  Company Number: US-BAYER-2011-055964

PATIENT
  Age: 55 Year
  Sex: Female
  Weight: 81.633 kg

DRUGS (1)
  1. MAGNEVIST [Suspect]
     Indication: NUCLEAR MAGNETIC RESONANCE IMAGING
     Dosage: 15 ML, ONCE
     Route: 042
     Dates: start: 20110627, end: 20110627

REACTIONS (2)
  - BLOOD PRESSURE INCREASED [None]
  - SENSATION OF FOREIGN BODY [None]
